FAERS Safety Report 19072251 (Version 2)
Quarter: 2021Q2

REPORT INFORMATION
  Report Type: Spontaneous
  Country: GB (occurrence: GB)
  Receive Date: 20210330
  Receipt Date: 20210415
  Transmission Date: 20210717
  Serious: Yes (Hospitalization, Disabling, Other)
  Sender: FDA-Public Use
  Company Number: GB-PFIZER INC-2021282300

PATIENT
  Age: 22 Year
  Sex: Male

DRUGS (18)
  1. THIOPENTAL SODIUM. [Suspect]
     Active Substance: THIOPENTAL SODIUM
     Indication: STATUS EPILEPTICUS
     Dosage: UP TO 7 MG/KG/HR
     Route: 042
  2. PERAMPANEL [Concomitant]
     Active Substance: PERAMPANEL
     Indication: EPILEPSY
     Dosage: UP?TITRATED TO 14 MG DAILY / ADDED ON DAY 142 SLOWLY UP?TITRATED
  3. PHENYTOINE [Concomitant]
     Active Substance: PHENYTOIN
     Indication: STATUS EPILEPTICUS
  4. KETAMINE HCL [Suspect]
     Active Substance: KETAMINE HYDROCHLORIDE
     Indication: STATUS EPILEPTICUS
     Dosage: RATED UP TO 6 MG/KG/HR
  5. LACOSAMIDE. [Concomitant]
     Active Substance: LACOSAMIDE
     Indication: STATUS EPILEPTICUS
  6. LEVETIRACETAM. [Concomitant]
     Active Substance: LEVETIRACETAM
     Indication: EPILEPSY
  7. CLOBAZAM. [Concomitant]
     Active Substance: CLOBAZAM
     Indication: STATUS EPILEPTICUS
  8. PROPOFOL. [Suspect]
     Active Substance: PROPOFOL
     Indication: STATUS EPILEPTICUS
     Dosage: 5 MG/KG/HR
     Route: 040
  9. CLONAZEPAM. [Concomitant]
     Active Substance: CLONAZEPAM
     Indication: STATUS EPILEPTICUS
  10. FENTANYL. [Suspect]
     Active Substance: FENTANYL
     Indication: SEDATION
     Dosage: UP TO 300UG/KG/H
     Route: 040
  11. FENTANYL. [Suspect]
     Active Substance: FENTANYL
     Indication: STATUS EPILEPTICUS
  12. PROPOFOL. [Suspect]
     Active Substance: PROPOFOL
     Indication: SEDATIVE THERAPY
  13. METHYLPREDNISOLONE. [Concomitant]
     Active Substance: METHYLPREDNISOLONE
     Indication: STATUS EPILEPTICUS
     Dosage: TWO SEPARATE PULSES(FOR 5 DAYS) ? 1 G/DAY AND A PROLONGED COURSE OF HIGH DOSE ORAL STEROIDS(1 MG/KG)
     Route: 042
  14. LORAZEPAM. [Concomitant]
     Active Substance: LORAZEPAM
     Indication: PAROXYSMAL SYMPATHETIC HYPERACTIVITY
  15. MIDAZOLAM. [Suspect]
     Active Substance: MIDAZOLAM
     Indication: STATUS EPILEPTICUS
     Dosage: UP TO 20 MG/HR
  16. TOPIRAMATE. [Concomitant]
     Active Substance: TOPIRAMATE
     Indication: STATUS EPILEPTICUS
     Route: 042
  17. LORAZEPAM. [Concomitant]
     Active Substance: LORAZEPAM
     Indication: EPILEPSY
  18. VALPROATE [Concomitant]
     Active Substance: VALPROIC ACID
     Indication: STATUS EPILEPTICUS

REACTIONS (29)
  - Thrombophlebitis [Unknown]
  - Decubitus ulcer [Unknown]
  - Coagulopathy [Unknown]
  - Behaviour disorder [Unknown]
  - Anaemia [Unknown]
  - Liver function test abnormal [Unknown]
  - Tachycardia [Unknown]
  - Drug hypersensitivity [Unknown]
  - Acute lung injury [Unknown]
  - Rash [Unknown]
  - Infection [Unknown]
  - Acute kidney injury [Unknown]
  - Memory impairment [Unknown]
  - Abdominal compartment syndrome [Unknown]
  - Hypotension [Unknown]
  - Fungal infection [Unknown]
  - Haematuria [Unknown]
  - Pyrexia [Unknown]
  - Weight decreased [Unknown]
  - Cognitive disorder [Unknown]
  - Bradycardia [Unknown]
  - Intensive care unit acquired weakness [Unknown]
  - Hypothyroidism [Unknown]
  - Ileus [Unknown]
  - Partial seizures [Not Recovered/Not Resolved]
  - Hypercalcaemia [Unknown]
  - Hypernatraemia [Unknown]
  - Muscle contracture [Unknown]
  - Deep vein thrombosis [Unknown]
